FAERS Safety Report 8007884-9 (Version None)
Quarter: 2011Q4

REPORT INFORMATION
  Report Type: 
  Country: None (occurrence: None)
  Receive Date: 20111222
  Receipt Date: 20111222
  Transmission Date: 20120403
  Serious: No
  Sender: FDA-Public Use
  Company Number: None

PATIENT
  Sex: Female
  Weight: 74.8435 kg

DRUGS (1)
  1. PREDNISONE [Suspect]
     Indication: PEMPHIGUS
     Dosage: 50MG TO 5MG 1 X DAY ORAL
     Route: 048
     Dates: start: 20110804, end: 20111024

REACTIONS (1)
  - ALOPECIA [None]
